FAERS Safety Report 7384071-9 (Version None)
Quarter: 2011Q1

REPORT INFORMATION
  Report Type: 
  Country: None (occurrence: None)
  Receive Date: 20110330
  Receipt Date: 20110324
  Transmission Date: 20110831
  Serious: Yes (Death)
  Sender: FDA-Public Use
  Company Number: A0772834A

PATIENT
  Age: 51 Year
  Sex: Female
  Weight: 81.8 kg

DRUGS (3)
  1. ENALAPRIL [Concomitant]
  2. AVANDIA [Suspect]
     Indication: DIABETES MELLITUS
     Dosage: 4MG TWICE PER DAY
     Route: 048
     Dates: end: 20070521
  3. METFORMIN [Concomitant]

REACTIONS (5)
  - SUDDEN DEATH [None]
  - CARDIAC TAMPONADE [None]
  - CORONARY ARTERY DISEASE [None]
  - MYOCARDIAL INFARCTION [None]
  - MYOCARDIAL RUPTURE [None]
